FAERS Safety Report 7318374-0 (Version None)
Quarter: 2011Q1

REPORT INFORMATION
  Report Type: 
  Country: None (occurrence: None)
  Receive Date: 20110217
  Receipt Date: 20110217
  Transmission Date: 20110831
  Serious: Yes (Other)
  Sender: FDA-Public Use
  Company Number: None

PATIENT
  Sex: Male
  Weight: 68.0396 kg

DRUGS (2)
  1. TAMSULOSIN HCL [Suspect]
     Indication: BENIGN PROSTATIC HYPERPLASIA
     Dosage: ONCE DAILY ORALLY
     Route: 048
     Dates: start: 20060101
  2. FLOMAX [Suspect]

REACTIONS (3)
  - MICTURITION URGENCY [None]
  - MALAISE [None]
  - PRODUCT SUBSTITUTION ISSUE [None]
